FAERS Safety Report 6084257-X (Version None)
Quarter: 2009Q1

REPORT INFORMATION
  Report Type: 
  Country: None (occurrence: None)
  Receive Date: 20090219
  Receipt Date: 20090210
  Transmission Date: 20090719
  Serious: Yes (Other)
  Sender: FDA-Public Use
  Company Number: PHNU2008DE01566

PATIENT
  Sex: Male

DRUGS (4)
  1. LEPONEX [Suspect]
     Indication: SCHIZOPHRENIA
     Dosage: 50-0-125 MG
     Route: 048
     Dates: start: 20080121
  2. GLIANIMON [Concomitant]
     Indication: SCHIZOPHRENIA
     Dosage: 8 MG, TID
     Route: 048
  3. GLIANIMON [Concomitant]
     Dosage: 11 MG/DAY
     Route: 048
  4. OSNERVAN [Concomitant]
     Indication: EXTRAPYRAMIDAL DISORDER
     Dosage: 2X1
     Route: 048

REACTIONS (7)
  - DEPRESSION [None]
  - DRUG LEVEL DECREASED [None]
  - HALLUCINATION, AUDITORY [None]
  - HYPERMETABOLISM [None]
  - PSYCHOTIC DISORDER [None]
  - SLEEP DISORDER [None]
  - SUICIDAL IDEATION [None]
